FAERS Safety Report 5474629-6 (Version None)
Quarter: 2007Q3

REPORT INFORMATION
  Report Type: 
  Country: None (occurrence: None)
  Receive Date: 20070831
  Receipt Date: 20061006
  Transmission Date: 20080115
  Serious: Yes (Life-Threatening, Hospitalization)
  Sender: FDA-Public Use
  Company Number: 257560

PATIENT
  Age: 81 Year
  Sex: Female
  Weight: 54.4 kg

DRUGS (2)
  1. NOVOLIN 70/30 [Suspect]
     Indication: INSULIN-REQUIRING TYPE II DIABETES MELLITUS
     Dosage: 26 IU, QD, SUBCUTANEOUS, 16-20 UNITS, QD, SUBCUTANEOUS
     Route: 058
     Dates: start: 19940101
  2. NOVOPEN (R) 3 (INSULIN DELIVERY DEVICE) [Concomitant]

REACTIONS (2)
  - HYPOGLYCAEMIA [None]
  - LOSS OF CONSCIOUSNESS [None]
